FAERS Safety Report 9827335 (Version 2)
Quarter: 2014Q1

REPORT INFORMATION
  Report Type: Spontaneous
  Country: US (occurrence: US)
  Receive Date: 20140117
  Receipt Date: 20140306
  Transmission Date: 20141002
  Serious: Yes (Death)
  Sender: FDA-Public Use
  Company Number: US-TEVA-456007USA

PATIENT
  Sex: Female

DRUGS (1)
  1. FENTANYL [Suspect]

REACTIONS (1)
  - Lung cancer metastatic [Fatal]
